FAERS Safety Report 9410428 (Version 2)
Quarter: 2013Q3

REPORT INFORMATION
  Report Type: Spontaneous
  Country: US (occurrence: US)
  Receive Date: 20130719
  Receipt Date: 20130807
  Transmission Date: 20140515
  Serious: Yes (Death, Other)
  Sender: FDA-Public Use
  Company Number: US-009507513-1307USA010706

PATIENT
  Sex: Male

DRUGS (3)
  1. JANUVIA [Suspect]
     Dosage: UNKNOWN
     Route: 048
  2. TRADJENTA [Concomitant]
     Dosage: UNKNOWN
  3. METFORMIN [Concomitant]

REACTIONS (1)
  - Pancreatic carcinoma [Fatal]
